FAERS Safety Report 23277933 (Version 1)
Quarter: 2023Q4

REPORT INFORMATION
  Report Type: Spontaneous
  Country: US (occurrence: None)
  Receive Date: 20231207
  Receipt Date: 20231207
  Transmission Date: 20240110
  Serious: No
  Sender: FDA-Public Use
  Company Number: None

PATIENT
  Age: 70 Year
  Sex: Female
  Weight: 73.35 kg

DRUGS (1)
  1. FEMRING [Suspect]
     Active Substance: ESTRADIOL ACETATE
     Indication: Atrophic vulvovaginitis
     Dosage: OTHER QUANTITY : 1 VAGINAL RING;?OTHER FREQUENCY : Q 3 MOS;?
     Route: 067
     Dates: start: 20231024, end: 20231107

REACTIONS (1)
  - Breast tenderness [None]

NARRATIVE: CASE EVENT DATE: 20231024
